FAERS Safety Report 4499769-X (Version None)
Quarter: 2004Q4

REPORT INFORMATION
  Report Type: 
  Country: None (occurrence: None)
  Receive Date: 20041110
  Receipt Date: 20041110
  Transmission Date: 20050328
  Serious: Yes (Hospitalization)
  Sender: FDA-Public Use
  Company Number: None

PATIENT
  Age: 60 Year
  Sex: Male
  Weight: 65 kg

DRUGS (10)
  1. ASPIRIN [Suspect]
     Indication: CEREBROVASCULAR ACCIDENT PROPHYLAXIS
     Dosage: 325 MG PO Q DAILY
     Route: 048
  2. CLOPIDOGREL BISULFATE [Suspect]
     Indication: CEREBROVASCULAR ACCIDENT PROPHYLAXIS
     Dosage: 75 MG PO Q DAILY
     Route: 048
  3. COMBIVANT [Concomitant]
  4. DIGOXIN [Concomitant]
  5. ENALAPRIL [Concomitant]
  6. HYDROCHLOROTHIAZIDE [Concomitant]
  7. METOPROLOL [Concomitant]
  8. NITROGLYCERIN [Concomitant]
  9. ZOCOR [Concomitant]
  10. SPIRONOLACTONE [Concomitant]

REACTIONS (5)
  - BLOOD PRESSURE ORTHOSTATIC [None]
  - COLONIC HAEMORRHAGE [None]
  - DIARRHOEA HAEMORRHAGIC [None]
  - PALLOR [None]
  - UPPER GASTROINTESTINAL HAEMORRHAGE [None]
